FAERS Safety Report 10267687 (Version 1)
Quarter: 2014Q2

REPORT INFORMATION
  Report Type: Spontaneous
  Country: US (occurrence: US)
  Receive Date: 20140630
  Receipt Date: 20140630
  Transmission Date: 20141212
  Serious: No
  Sender: FDA-Public Use
  Company Number: US-PFIZER INC-2014177295

PATIENT
  Age: 27 Year
  Sex: Female
  Weight: 53.52 kg

DRUGS (2)
  1. CHANTIX [Suspect]
     Indication: SMOKING CESSATION THERAPY
     Dosage: 0.5 MG, 1X/DAY
     Route: 048
     Dates: start: 201403, end: 2014
  2. CHANTIX [Suspect]
     Dosage: UNK
     Route: 048
     Dates: start: 2014, end: 201405

REACTIONS (5)
  - Anger [Unknown]
  - Nightmare [Unknown]
  - Screaming [Unknown]
  - Middle insomnia [Unknown]
  - Tobacco user [Unknown]
